FAERS Safety Report 11947797 (Version 3)
Quarter: 2016Q3

REPORT INFORMATION
  Report Type: Spontaneous
  Country: ES (occurrence: ES)
  Receive Date: 20160125
  Receipt Date: 20160726
  Transmission Date: 20161109
  Serious: Yes (Other)
  Sender: FDA-Public Use
  Company Number: ES-AUROBINDO-AUR-APL-2016-00470

PATIENT
  Age: 42 Year
  Sex: Female

DRUGS (2)
  1. MIRTAZAPINE 30MG [Suspect]
     Active Substance: MIRTAZAPINE
     Indication: IRRITABLE BOWEL SYNDROME
     Dosage: 0.5, AT BED TIME
     Route: 065
     Dates: start: 201406, end: 20160208
  2. SPASMOCTYL [Concomitant]
     Indication: PRODUCT USED FOR UNKNOWN INDICATION
     Route: 065

REACTIONS (5)
  - Off label use [Unknown]
  - Haemorrhagic cyst [Recovered/Resolved]
  - Ovarian granulosa cell tumour [Not Recovered/Not Resolved]
  - Menstruation irregular [Unknown]
  - Oophorectomy [Not Recovered/Not Resolved]
